FAERS Safety Report 6609266-0 (Version None)
Quarter: 2010Q1

REPORT INFORMATION
  Report Type: 
  Country: None (occurrence: None)
  Receive Date: 20100223
  Receipt Date: 20100211
  Transmission Date: 20100710
  Serious: Yes (Hospitalization)
  Sender: FDA-Public Use
  Company Number: DSU-2010-00580

PATIENT
  Sex: Male

DRUGS (2)
  1. AZOR [Suspect]
     Indication: HYPERTENSION
     Dosage: ??/40 MG (QD), PER ORAL; ?? / 20 MG (QD) ,PER ORAL
     Route: 048
     Dates: start: 20090101, end: 20100201
  2. AZOR [Suspect]
     Indication: HYPERTENSION
     Dosage: ??/40 MG (QD), PER ORAL; ?? / 20 MG (QD) ,PER ORAL
     Route: 048
     Dates: start: 20100201

REACTIONS (4)
  - CHEST DISCOMFORT [None]
  - CORONARY ARTERY OCCLUSION [None]
  - COUGH [None]
  - WEIGHT DECREASED [None]
